FAERS Safety Report 5195792-0 (Version None)
Quarter: 2007Q1

REPORT INFORMATION
  Report Type: 
  Country: None (occurrence: None)
  Receive Date: 20070102
  Receipt Date: 20060808
  Transmission Date: 20070707
  Serious: Yes (Hospitalization)
  Sender: FDA-Public Use
  Company Number: US-ROCHE-476352

PATIENT
  Age: 61 Year
  Sex: Male
  Weight: 69.9 kg

DRUGS (10)
  1. RIBAVIRIN [Suspect]
     Dosage: PATIENT REPORTED TO HAVE TAKEN 400 MG IN AM AND 600 MG IN PM. TAKEN WITH FOOD.
     Route: 048
     Dates: start: 20060525
  2. PEG-INTERFERON ALFA 2A (RO 25-8310) [Suspect]
     Route: 058
     Dates: start: 20060525
  3. ATENOLOL [Concomitant]
     Route: 048
     Dates: start: 20050628
  4. GEMFIBROZIL [Concomitant]
     Dosage: TAKEN 30 MINUTES BEFORE MORNING AND EVENING MEALS.
     Route: 048
     Dates: start: 20050518
  5. HYDROCHLOROTHIAZIDE [Concomitant]
     Route: 048
     Dates: start: 20050518
  6. TRUVADA [Concomitant]
     Dosage: REPORTED AS 200/300 MG TABLET.  ONE TABLET TAKEN WITH FOOD ONCE DAILY.
     Route: 048
     Dates: start: 20051019
  7. ASPIRIN [Concomitant]
     Route: 048
     Dates: start: 20050518
  8. UNSPECIFIED DRUG [Concomitant]
     Dosage: REPORTED AS MULTIVITAMINS. 1 TABLET TAKEN DAILY.
     Route: 048
     Dates: start: 20050518
  9. VIAGRA [Concomitant]
     Dosage: REPORTED AS 1/4 TO 1/2 ORALLY X 1 PRN.  TAKEN 0.5 TO 4 HR PRIOR TO INTERCOURSE.  1/4 TO 1/2 AS NEED+
     Route: 048
     Dates: start: 20060329
  10. SUSTIVA [Concomitant]
     Route: 048

REACTIONS (3)
  - CONVULSION [None]
  - PYREXIA [None]
  - SYNCOPE [None]
